FAERS Safety Report 14467921 (Version 1)
Quarter: 2018Q1

REPORT INFORMATION
  Report Type: Spontaneous
  Country: US (occurrence: US)
  Receive Date: 20180131
  Receipt Date: 20180131
  Transmission Date: 20180509
  Serious: No
  Sender: FDA-Public Use
  Company Number: US-PFIZER INC-2017493284

PATIENT
  Age: 64 Year
  Sex: Female
  Weight: 59 kg

DRUGS (5)
  1. FISH OIL [Concomitant]
     Active Substance: FISH OIL
     Dosage: UNK
  2. IBUPROFEN. [Concomitant]
     Active Substance: IBUPROFEN
     Dosage: UNK
  3. VITAMIN D [Concomitant]
     Active Substance: CHOLECALCIFEROL
     Dosage: UNK
  4. IBRANCE [Suspect]
     Active Substance: PALBOCICLIB
     Indication: BREAST CANCER METASTATIC
     Dosage: 1 DF, CYCLIC (ONE CAPSULE BY MOUTH PER DAY FOR 21 DAYS AND THEN OFF FOR 7 DAYS)
     Route: 048
     Dates: start: 201710
  5. LETROZOLE. [Concomitant]
     Active Substance: LETROZOLE
     Dosage: UNK

REACTIONS (2)
  - Back pain [Not Recovered/Not Resolved]
  - Pain [Not Recovered/Not Resolved]

NARRATIVE: CASE EVENT DATE: 201710
